FAERS Safety Report 5674469-9 (Version None)
Quarter: 2008Q2

REPORT INFORMATION
  Report Type: 
  Country: None (occurrence: None)
  Receive Date: 20080303
  Receipt Date: 20070524
  Transmission Date: 20081010
  Serious: Yes (Other)
  Sender: FDA-Public Use
  Company Number: MK-6034198

PATIENT
  Age: 16 Year
  Sex: Male
  Weight: 79.45 kg

DRUGS (1)
  1. AMNESTEEM [Suspect]
     Indication: ACNE CONGLOBATA
     Dosage: 40 MG;TWICE A DAY;ORAL
     Route: 048
     Dates: start: 20061206, end: 20070112

REACTIONS (2)
  - CONVULSION [None]
  - EPISTAXIS [None]
